FAERS Safety Report 9242836 (Version 1)
Quarter: 2013Q2

REPORT INFORMATION
  Report Type: Spontaneous
  Country: US (occurrence: US)
  Receive Date: 20130419
  Receipt Date: 20130419
  Transmission Date: 20140414
  Serious: No
  Sender: FDA-Public Use
  Company Number: US-BAYER-2013-044372

PATIENT
  Age: 57 Year
  Sex: Male
  Weight: 92.97 kg

DRUGS (3)
  1. ALEVE CAPLET [Suspect]
     Indication: HEADACHE
     Dosage: 1 DF, PRN
     Route: 048
     Dates: end: 20130327
  2. HEADACHE POWDER [Concomitant]
  3. IBUPROFEN [Concomitant]

REACTIONS (10)
  - Foreign body [Recovered/Resolved]
  - Dysphagia [Not Recovered/Not Resolved]
  - Oropharyngeal pain [Not Recovered/Not Resolved]
  - Oropharyngeal pain [Not Recovered/Not Resolved]
  - Odynophagia [Not Recovered/Not Resolved]
  - Throat irritation [Recovered/Resolved]
  - Musculoskeletal stiffness [Not Recovered/Not Resolved]
  - Ear discomfort [Recovered/Resolved]
  - Unevaluable event [Recovered/Resolved]
  - Oropharyngeal discomfort [Not Recovered/Not Resolved]
